FAERS Safety Report 5369804-5 (Version None)
Quarter: 2007Q2

REPORT INFORMATION
  Report Type: 
  Country: None (occurrence: None)
  Receive Date: 20070620
  Receipt Date: 20070611
  Transmission Date: 20071010
  Serious: Yes (Other)
  Sender: FDA-Public Use
  Company Number: 2007323802

PATIENT
  Age: 4 Year
  Sex: Male
  Weight: 24.4942 kg

DRUGS (4)
  1. BENADRYL [Suspect]
     Indication: HYPERSENSITIVITY
     Dosage: ONE FASTMELT TABLET AS NEEDED, ORAL
     Route: 048
  2. CLARINEX [Concomitant]
  3. SINGULAIR [Concomitant]
  4. PULMICORT [Concomitant]

REACTIONS (5)
  - DROOLING [None]
  - DYSKINESIA [None]
  - HYPOTONIA [None]
  - LETHARGY [None]
  - REACTION TO DRUG EXCIPIENTS [None]
